FAERS Safety Report 25655077 (Version 1)
Quarter: 2025Q3

REPORT INFORMATION
  Report Type: Spontaneous
  Country: EU (occurrence: EU)
  Receive Date: 20250807
  Receipt Date: 20250807
  Transmission Date: 20251021
  Serious: Yes (Other)
  Sender: RANBAXY
  Company Number: EU-AFSSAPS-AN2025000524

PATIENT
  Age: 25 Year
  Sex: Female
  Weight: 80 kg

DRUGS (2)
  1. SERTRALINE [Interacting]
     Active Substance: SERTRALINE HYDROCHLORIDE
     Indication: Depression
     Dosage: 150 MILLIGRAM, DAILY
     Route: 048
  2. SUMATRIPTAN SUCCINATE [Interacting]
     Active Substance: SUMATRIPTAN SUCCINATE
     Indication: Wrong product administered
     Route: 048

REACTIONS (6)
  - Neck pain [Recovering/Resolving]
  - Arthralgia [Recovered/Resolved]
  - Vision blurred [Recovered/Resolved]
  - Fatigue [Recovering/Resolving]
  - Dyspnoea [Recovered/Resolved]
  - Drug interaction [Recovering/Resolving]

NARRATIVE: CASE EVENT DATE: 20250326
